FAERS Safety Report 12001107 (Version 1)
Quarter: 2016Q1

REPORT INFORMATION
  Report Type: Spontaneous
  Country: GR (occurrence: GR)
  Receive Date: 20160204
  Receipt Date: 20160204
  Transmission Date: 20160526
  Serious: Yes (Death)
  Sender: FDA-Public Use
  Company Number: GR-ACORDA-ACO_121057_2016

PATIENT
  Sex: Female

DRUGS (2)
  1. QUTENZA [Suspect]
     Active Substance: CAPSAICIN
     Indication: NEURALGIA
     Dosage: 2 PATCHES, UNKNOWN FREQ.
     Route: 065
     Dates: start: 20141120, end: 20141120
  2. QUTENZA [Suspect]
     Active Substance: CAPSAICIN
     Dosage: 2 PATCHES, UNKNOWN FREQ.
     Route: 065
     Dates: start: 20141205, end: 20141205

REACTIONS (1)
  - Death [Fatal]
